FAERS Safety Report 9314697 (Version 2)
Quarter: 2013Q4

REPORT INFORMATION
  Report Type: Spontaneous
  Country: US (occurrence: US)
  Receive Date: 20130529
  Receipt Date: 20131016
  Transmission Date: 20140711
  Serious: Yes (Other)
  Sender: FDA-Public Use
  Company Number: US-ROCHE-1229596

PATIENT
  Age: 31 Year
  Sex: Female
  Weight: 50 kg

DRUGS (4)
  1. CELLCEPT [Suspect]
     Indication: LUNG TRANSPLANT
     Route: 048
     Dates: start: 201102, end: 20130507
  2. TACROLIMUS [Concomitant]
     Indication: LUNG TRANSPLANT
     Route: 048
     Dates: start: 20100925
  3. PREDNISONE [Concomitant]
     Route: 048
     Dates: start: 20100925
  4. RATG [Concomitant]
     Route: 042
     Dates: start: 20130408, end: 20130411

REACTIONS (2)
  - Abortion spontaneous [Unknown]
  - Exposure during pregnancy [Unknown]
